FAERS Safety Report 8838657 (Version 6)
Quarter: 2013Q1

REPORT INFORMATION
  Report Type: Spontaneous
  Country: US (occurrence: US)
  Receive Date: 20121012
  Receipt Date: 20130308
  Transmission Date: 20140127
  Serious: Yes (Hospitalization, Disabling, Other)
  Sender: FDA-Public Use
  Company Number: US-009507513-1210USA003274

PATIENT
  Sex: Female
  Weight: 79.37 kg

DRUGS (2)
  1. NUVARING [Suspect]
     Indication: CONTRACEPTION
     Dosage: UNK, IN 3 WEEKS, OUT 1 WEEK
     Route: 067
     Dates: start: 20111206, end: 20111228
  2. NUVARING [Suspect]
     Indication: ABNORMAL WITHDRAWAL BLEEDING

REACTIONS (10)
  - Deep vein thrombosis [Recovered/Resolved]
  - Pulmonary embolism [Recovered/Resolved]
  - Depression [Unknown]
  - Off label use [Recovered/Resolved]
  - Hypothyroidism [Unknown]
  - Deep vein thrombosis [Recovered/Resolved]
  - Diabetes mellitus [Unknown]
  - Hypertension [Unknown]
  - Neuropathy peripheral [Unknown]
  - Vaginitis bacterial [Unknown]
